FAERS Safety Report 7325974 (Version 3)
Quarter: 2012Q4

REPORT INFORMATION
  Report Type: 
  Country: CN (occurrence: CN)
  Receive Date: 20100319
  Receipt Date: 20121219
  Transmission Date: 20130627
  Serious: Yes (Other)
  Sender: FDA-Public Use
  Company Number: PHHY2010CN14917

PATIENT
  Age: 38 Year
  Sex: Male

DRUGS (10)
  1. SANDOSTATIN [Suspect]
     Dosage: 0.2 mg
     Route: 042
     Dates: start: 20080823, end: 20080823
  2. SANDOSTATIN [Suspect]
     Dosage: UNK
  3. SALINE [Concomitant]
     Dosage: 100 ml, UNK
  4. OMEPRAZOLE [Concomitant]
     Dosage: 40 mg, Q12H
  5. GLUCOSE [Concomitant]
     Dosage: 500 ml, UNK
  6. VITAMIN K3 [Concomitant]
     Dosage: 20 mg, UNK
  7. MAGNESIUM SULFATE [Concomitant]
     Dosage: 10 ml, UNK
  8. PHLOROGLUCINOL [Concomitant]
     Dosage: 80 mg
  9. CEFTAZIDIME [Concomitant]
     Dosage: 3 g, BID
  10. TINIDAZOLE [Concomitant]
     Dosage: 200 ml, QD

REACTIONS (8)
  - Chest discomfort [Recovering/Resolving]
  - Breath holding [Recovering/Resolving]
  - Sinus bradycardia [Recovering/Resolving]
  - Heart rate decreased [Recovering/Resolving]
  - Palpitations [Recovering/Resolving]
  - Hyperhidrosis [Recovering/Resolving]
  - Blood pressure abnormal [Recovering/Resolving]
  - Asthenia [Recovering/Resolving]
